FAERS Safety Report 5653340-2 (Version None)
Quarter: 2008Q1

REPORT INFORMATION
  Report Type: 
  Country: None (occurrence: None)
  Receive Date: 20080306
  Receipt Date: 20080303
  Transmission Date: 20080703
  Serious: Yes (Hospitalization)
  Sender: FDA-Public Use
  Company Number: HK-MERCK-0803HKG00002

PATIENT

DRUGS (1)
  1. INVANZ [Suspect]
     Indication: URINARY TRACT INFECTION
     Route: 051
     Dates: start: 20080101, end: 20080101

REACTIONS (2)
  - PYELONEPHRITIS [None]
  - PYREXIA [None]
